FAERS Safety Report 16722199 (Version 3)
Quarter: 2019Q3

REPORT INFORMATION
  Report Type: Spontaneous
  Country: US (occurrence: US)
  Receive Date: 20190820
  Receipt Date: 20190905
  Transmission Date: 20191005
  Serious: No
  Sender: FDA-Public Use
  Company Number: US-PFIZER INC-2019355291

PATIENT
  Age: 71 Year

DRUGS (4)
  1. ELIQUIS [Suspect]
     Active Substance: APIXABAN
     Dosage: 2.5 MG, UNK
  2. TAFAMIDIS MEGLUMINE [Suspect]
     Active Substance: TAFAMIDIS MEGLUMINE
     Dosage: 80 MG, UNK
  3. DOXYCYCLINE CALCIUM [Suspect]
     Active Substance: DOXYCYCLINE CALCIUM
     Dosage: 100 MG, UNK
  4. ELIQUIS [Suspect]
     Active Substance: APIXABAN
     Dosage: 5 MG, UNK

REACTIONS (3)
  - Haemoptysis [Unknown]
  - Pneumonitis [Unknown]
  - Intentional product use issue [Unknown]
